FAERS Safety Report 5542510-X (Version None)
Quarter: 2007Q4

REPORT INFORMATION
  Report Type: 
  Country: None (occurrence: None)
  Receive Date: 20071129
  Receipt Date: 20070514
  Transmission Date: 20080405
  Serious: Yes (Hospitalization)
  Sender: FDA-Public Use
  Company Number: US200703006041

PATIENT
  Age: 45 Year
  Sex: Female

DRUGS (4)
  1. ZYPREXA [Suspect]
     Indication: SLEEP DISORDER
     Dosage: 2.5 MG, EACH MORNING, ORAL : 20 MG, EACH EVENING, ORAL
     Route: 048
     Dates: end: 20070327
  2. ZYPREXA [Suspect]
     Indication: SLEEP DISORDER
     Dosage: 2.5 MG, EACH MORNING, ORAL : 20 MG, EACH EVENING, ORAL
     Route: 048
     Dates: end: 20070327
  3. TEGRETOL [Concomitant]
  4. LEXAPRO [Concomitant]

REACTIONS (2)
  - INTENTIONAL OVERDOSE [None]
  - OVERDOSE [None]
